FAERS Safety Report 7871284-2 (Version None)
Quarter: 2011Q4

REPORT INFORMATION
  Report Type: 
  Country: None (occurrence: None)
  Receive Date: 20111029
  Receipt Date: 20110228
  Transmission Date: 20120403
  Serious: No
  Sender: FDA-Public Use
  Company Number: US-AMGEN-USASP2011011489

PATIENT
  Age: 49 Year
  Sex: Female

DRUGS (3)
  1. MULTI-VITAMIN [Concomitant]
  2. ENBREL [Suspect]
     Indication: ANKYLOSING SPONDYLITIS
     Dosage: UNK
  3. OMEGA 3 CAPSULE [Concomitant]

REACTIONS (3)
  - ARTHRALGIA [None]
  - INJECTION SITE HAEMATOMA [None]
  - FATIGUE [None]
